FAERS Safety Report 12498945 (Version 1)
Quarter: 2016Q2

REPORT INFORMATION
  Report Type: Spontaneous
  Country: US (occurrence: US)
  Receive Date: 20160627
  Receipt Date: 20160627
  Transmission Date: 20160815
  Serious: No
  Sender: FDA-Public Use
  Company Number: US-TEVA-572571USA

PATIENT
  Age: 81 Year
  Sex: Female

DRUGS (2)
  1. LETROZOLE. [Suspect]
     Active Substance: LETROZOLE
     Indication: BREAST CANCER
     Dosage: FREQUENCY NOT PROVIDED
     Route: 065
     Dates: start: 20150422
  2. LETROZOLE. [Suspect]
     Active Substance: LETROZOLE
     Indication: POSTMENOPAUSE

REACTIONS (1)
  - Rash macular [Unknown]

NARRATIVE: CASE EVENT DATE: 20150601
